FAERS Safety Report 10909347 (Version 1)
Quarter: 2015Q1

REPORT INFORMATION
  Report Type: Spontaneous
  Country: US (occurrence: US)
  Receive Date: 20150312
  Receipt Date: 20150312
  Transmission Date: 20150721
  Serious: No
  Sender: FDA-Public Use
  Company Number: US-SA-2014SA041209

PATIENT
  Age: 86 Year
  Sex: Male

DRUGS (3)
  1. ALL OTHER THERAPEUTIC PRODUCTS [Concomitant]
     Active Substance: UNSPECIFIED INGREDIENT
     Indication: BLADDER DISORDER
     Route: 065
  2. NASACORT ALLERGY 24HR [Suspect]
     Active Substance: TRIAMCINOLONE ACETONIDE
     Indication: NASAL CONGESTION
     Dosage: (1 SPRAY/NOSTRIL) BEFORE BEDTIME
  3. ALUMINIUM ACETATE [Concomitant]
     Indication: PRURITUS
     Route: 065
     Dates: start: 20140327

REACTIONS (2)
  - Dizziness [Unknown]
  - Therapeutic response decreased [Unknown]
